FAERS Safety Report 8834753 (Version 2)
Quarter: 2012Q4

REPORT INFORMATION
  Report Type: 
  Country: RO (occurrence: RO)
  Receive Date: 20121010
  Receipt Date: 20121023
  Transmission Date: 20130627
  Serious: Yes (Hospitalization)
  Sender: FDA-Public Use
  Company Number: RO-JNJFOC-20121001566

PATIENT
  Age: 63 Year
  Sex: Female
  Weight: 65 kg

DRUGS (8)
  1. REMICADE [Suspect]
     Indication: ANKYLOSING SPONDYLITIS
     Route: 042
     Dates: start: 20120314, end: 20120424
  2. MELOXICAM [Concomitant]
     Indication: ANKYLOSING SPONDYLITIS
     Dosage: PRN
     Route: 065
     Dates: start: 201109, end: 201207
  3. TERTENSIF [Concomitant]
     Indication: HYPERTENSION
     Route: 065
     Dates: start: 2000
  4. LERIDIP [Concomitant]
     Indication: HYPERTENSION
     Route: 065
     Dates: start: 2000
  5. TROMBOSTOP [Concomitant]
     Indication: CAROTID ARTERY STENOSIS
     Route: 065
     Dates: start: 2008
  6. ALL OTHER THERAPEUTIC PRODUCT [Concomitant]
     Indication: HYPERTENSION
     Route: 065
     Dates: start: 2000
  7. CELEBREX [Concomitant]
     Indication: ANKYLOSING SPONDYLITIS
     Route: 048
     Dates: start: 2006
  8. MOVALIS [Concomitant]
     Indication: ANKYLOSING SPONDYLITIS
     Route: 048
     Dates: start: 2000

REACTIONS (1)
  - Lymph node tuberculosis [Unknown]
